FAERS Safety Report 20563460 (Version 6)
Quarter: 2023Q1

REPORT INFORMATION
  Report Type: Spontaneous
  Country: US (occurrence: US)
  Receive Date: 20220308
  Receipt Date: 20230103
  Transmission Date: 20230417
  Serious: Yes (Other)
  Sender: FDA-Public Use
  Company Number: US-PFIZER INC-202200343835

PATIENT
  Age: 91 Year
  Sex: Female

DRUGS (2)
  1. ESTRING [Suspect]
     Active Substance: ESTRADIOL
     Indication: Hormone therapy
     Dosage: 7.5 UG, DAILY, QUANTITY FOR 90 DAYS
  2. ESTRING [Suspect]
     Active Substance: ESTRADIOL
     Dosage: UNK (USUALLY TAKE EVERY 2 TO 3 MONTHS)
     Dates: start: 1992

REACTIONS (6)
  - Fungal infection [Unknown]
  - Urinary tract infection [Unknown]
  - Illness [Unknown]
  - COVID-19 [Unknown]
  - Pain [Unknown]
  - Motor dysfunction [Unknown]
